FAERS Safety Report 15612186 (Version 2)
Quarter: 2019Q1

REPORT INFORMATION
  Report Type: Spontaneous
  Country: US (occurrence: US)
  Receive Date: 20181113
  Receipt Date: 20190118
  Transmission Date: 20190417
  Serious: Yes (Hospitalization, Other)
  Sender: FDA-Public Use
  Company Number: US-BRISTOL-MYERS SQUIBB COMPANY-BMS-2018-106340

PATIENT
  Age: 74 Year
  Sex: Female
  Weight: 60.3 kg

DRUGS (1)
  1. NIVOLUMAB [Suspect]
     Active Substance: NIVOLUMAB
     Indication: PRODUCT USED FOR UNKNOWN INDICATION
     Dosage: UNK
     Route: 065
     Dates: end: 20171227

REACTIONS (9)
  - Constipation [Recovering/Resolving]
  - Hyperlipidaemia [Recovering/Resolving]
  - Pulmonary embolism [Recovering/Resolving]
  - Chronic respiratory failure [Recovering/Resolving]
  - Pneumonia [Recovering/Resolving]
  - Nausea [Recovering/Resolving]
  - Chronic obstructive pulmonary disease [Recovering/Resolving]
  - Lung neoplasm malignant [Recovering/Resolving]
  - Hypertension [Recovering/Resolving]

NARRATIVE: CASE EVENT DATE: 20180316
